FAERS Safety Report 8139544-8 (Version None)
Quarter: 2012Q1

REPORT INFORMATION
  Report Type: 
  Country: None (occurrence: None)
  Receive Date: 20120215
  Receipt Date: 20120131
  Transmission Date: 20120608
  Serious: Yes (Hospitalization, Other)
  Sender: FDA-Public Use
  Company Number: US-PFIZER INC-2012039634

PATIENT
  Age: 25 Year
  Sex: Female

DRUGS (9)
  1. RISPERIDONE [Suspect]
     Indication: ACUTE PSYCHOSIS
     Dosage: 2 MG, 1X/DAY
  2. HALOPERIDOL [Suspect]
     Dosage: 2.5 MG, 1X/DAY
  3. LORAZEPAM [Suspect]
     Indication: ACUTE PSYCHOSIS
     Dosage: 1 DF, UNK
  4. HALOPERIDOL [Suspect]
     Indication: ACUTE PSYCHOSIS
     Dosage: 1 DF, UNK
  5. FERROUS SULFATE [Concomitant]
     Dosage: UNK
  6. OLANZAPINE [Suspect]
     Dosage: 5 MG, 2X/DAY
  7. KAPSOVIT [Concomitant]
     Dosage: UNK
  8. OLANZAPINE [Suspect]
     Indication: ACUTE PSYCHOSIS
     Dosage: 5 MG, 1X/DAY
  9. FOLIC ACID [Concomitant]
     Dosage: UNK

REACTIONS (2)
  - MAJOR DEPRESSION [None]
  - NEUROLEPTIC MALIGNANT SYNDROME [None]
